FAERS Safety Report 5581028-5 (Version None)
Quarter: 2007Q4

REPORT INFORMATION
  Report Type: 
  Country: None (occurrence: None)
  Receive Date: 20071228
  Receipt Date: 20071217
  Transmission Date: 20080405
  Serious: Yes (Hospitalization)
  Sender: FDA-Public Use
  Company Number: 2007AL005387

PATIENT
  Age: 78 Year
  Sex: Female

DRUGS (5)
  1. PHENYTOIN [Suspect]
     Dosage: 300 MG;QD;UNKNOWN
  2. BISOPROLOL [Concomitant]
  3. BENDROFLUMETHIAZIDE [Concomitant]
  4. ASPIRIN [Concomitant]
  5. SIMVASTATIN [Concomitant]

REACTIONS (4)
  - ATAXIA [None]
  - BLOOD CHOLESTEROL INCREASED [None]
  - DRUG TOXICITY [None]
  - INCORRECT DOSE ADMINISTERED [None]
